FAERS Safety Report 15317943 (Version 1)
Quarter: 2018Q3

REPORT INFORMATION
  Report Type: Spontaneous
  Country: US (occurrence: US)
  Receive Date: 20180817
  Receipt Date: 20180817
  Transmission Date: 20181010
  Serious: Yes (Life-Threatening)
  Sender: FDA-Public Use
  Company Number: None

PATIENT
  Age: 75 Year
  Sex: Female
  Weight: 63.5 kg

DRUGS (1)
  1. LEVOTHYROXINE. [Suspect]
     Active Substance: LEVOTHYROXINE
     Indication: THYROID DISORDER
     Dosage: 72 TABLETS IN THE MORNING TAKEN BY MOUTH?
     Route: 048

REACTIONS (5)
  - Hyperhidrosis [None]
  - Weight decreased [None]
  - Dyspnoea [None]
  - Dizziness [None]
  - Unevaluable event [None]

NARRATIVE: CASE EVENT DATE: 20180612
